FAERS Safety Report 9154782 (Version 1)
Quarter: 2013Q1

REPORT INFORMATION
  Report Type: Spontaneous
  Country: US (occurrence: None)
  Receive Date: 20130305
  Receipt Date: 20130305
  Transmission Date: 20140127
  Serious: Yes (Hospitalization)
  Sender: FDA-Public Use
  Company Number: None

PATIENT
  Sex: Male
  Weight: 32.7 kg

DRUGS (2)
  1. CYCLOSPORINE [Suspect]
     Route: 048
     Dates: start: 20130215
  2. CYCLOSPORINE [Suspect]
     Route: 048
     Dates: start: 20130215

REACTIONS (3)
  - Product substitution issue [None]
  - Vomiting [None]
  - Drug intolerance [None]
